FAERS Safety Report 23115424 (Version 1)
Quarter: 2023Q4

REPORT INFORMATION
  Report Type: Spontaneous
  Country: US (occurrence: None)
  Receive Date: 20231026
  Receipt Date: 20231026
  Transmission Date: 20240110
  Serious: Yes (Life-Threatening, Hospitalization)
  Sender: FDA-Public Use
  Company Number: None

PATIENT
  Age: 61 Year
  Sex: Male

DRUGS (1)
  1. CEFTRIAXONE [Suspect]
     Active Substance: CEFTRIAXONE\CEFTRIAXONE SODIUM

REACTIONS (6)
  - Dyspnoea [None]
  - Swelling [None]
  - Pulseless electrical activity [None]
  - Cardio-respiratory arrest [None]
  - Ventricular tachycardia [None]
  - Pneumonia aspiration [None]

NARRATIVE: CASE EVENT DATE: 20230905
